FAERS Safety Report 21540828 (Version 1)
Quarter: 2022Q4

REPORT INFORMATION
  Report Type: Spontaneous
  Country: RO (occurrence: RO)
  Receive Date: 20221102
  Receipt Date: 20221102
  Transmission Date: 20230112
  Serious: Yes (Other)
  Sender: FDA-Public Use
  Company Number: RO-ROCHE-3205402

PATIENT
  Sex: Female

DRUGS (8)
  1. CLONAZEPAM [Suspect]
     Active Substance: CLONAZEPAM
     Indication: Sleep disorder
  2. CLONAZEPAM [Suspect]
     Active Substance: CLONAZEPAM
     Indication: Illness
  3. CLONAZEPAM [Suspect]
     Active Substance: CLONAZEPAM
     Indication: Sleep disorder
     Dosage: 2MGX2TABLET
  4. CLONAZEPAM [Suspect]
     Active Substance: CLONAZEPAM
     Indication: Illness
     Dosage: 2MGX2TABLET
  5. CLONAZEPAM [Suspect]
     Active Substance: CLONAZEPAM
     Indication: Sleep disorder
     Dosage: 2MGX3 TABLET
  6. CLONAZEPAM [Suspect]
     Active Substance: CLONAZEPAM
     Indication: Illness
     Dosage: 2MGX3 TABLET
  7. CEREBROLYSIN [Concomitant]
     Active Substance: CEREBROLYSIN
  8. UNSPECIFIED INGREDIENT [Suspect]
     Active Substance: UNSPECIFIED INGREDIENT
     Indication: Sleep disorder
     Dosage: 3 DOSAGE FORM

REACTIONS (4)
  - Disability [Unknown]
  - Memory impairment [Unknown]
  - Balance disorder [Unknown]
  - Product use in unapproved indication [Unknown]
